FAERS Safety Report 18495157 (Version 1)
Quarter: 2020Q4

REPORT INFORMATION
  Report Type: Spontaneous
  Country: DE (occurrence: DE)
  Receive Date: 20201112
  Receipt Date: 20201112
  Transmission Date: 20210114
  Serious: Yes (Hospitalization)
  Sender: FDA-Public Use
  Company Number: DE-AUROBINDO-AUR-APL-2020-055543

PATIENT
  Age: 43 Year
  Sex: Female
  Weight: 95 kg

DRUGS (3)
  1. PANTOPRAZOLE [Suspect]
     Active Substance: PANTOPRAZOLE
     Indication: PRODUCT USED FOR UNKNOWN INDICATION
     Dosage: 80 MILLIGRAM, FOR 1 WEEK (APPROX. 13082020)
     Route: 065
  2. SALBUTAMOL [Concomitant]
     Active Substance: ALBUTEROL
     Indication: PRODUCT USED FOR UNKNOWN INDICATION
     Dosage: NK ?G, IF NECESSARY
     Route: 065
  3. SYMBICORT [Concomitant]
     Active Substance: BUDESONIDE\FORMOTEROL FUMARATE DIHYDRATE
     Indication: PRODUCT USED FOR UNKNOWN INDICATION
     Dosage: NK ?G, IF NECESSARY
     Route: 065

REACTIONS (6)
  - Face oedema [Unknown]
  - Haemoptysis [Unknown]
  - Lip swelling [Unknown]
  - Erythema [Unknown]
  - General physical health deterioration [Unknown]
  - Abdominal pain [Unknown]
